FAERS Safety Report 8104923-1 (Version None)
Quarter: 2012Q1

REPORT INFORMATION
  Report Type: 
  Country: None (occurrence: None)
  Receive Date: 20120201
  Receipt Date: 20120130
  Transmission Date: 20120608
  Serious: No
  Sender: FDA-Public Use
  Company Number: US-GLAXOSMITHKLINE-A0963785A

PATIENT
  Age: 27 Year
  Sex: Female

DRUGS (1)
  1. SORIATANE [Suspect]
     Indication: PSORIASIS
     Dosage: 1CAP UNKNOWN
     Route: 048
     Dates: start: 20110801, end: 20111107

REACTIONS (1)
  - MATERNAL EXPOSURE DURING PREGNANCY [None]
